FAERS Safety Report 8875009 (Version 1)
Quarter: 2012Q4

REPORT INFORMATION
  Report Type: 
  Country: US (occurrence: US)
  Receive Date: 20121029
  Receipt Date: 20121029
  Transmission Date: 20130627
  Serious: No
  Sender: FDA-Public Use
  Company Number: US-PFIZER INC-2012267116

PATIENT
  Age: 69 Year
  Sex: Female
  Weight: 105 kg

DRUGS (4)
  1. EFFEXOR XR [Suspect]
     Indication: DEPRESSION
     Dosage: 75 mg, 3x/day
     Route: 048
     Dates: start: 2007
  2. EFFEXOR XR [Suspect]
     Indication: ANXIETY
     Dosage: 75 mg, 1x/day
  3. EFFEXOR [Suspect]
     Indication: DEPRESSION
     Dosage: UNK
     Route: 048
  4. EFFEXOR [Suspect]
     Indication: ANXIETY

REACTIONS (1)
  - Abdominal pain upper [Unknown]
